FAERS Safety Report 25658952 (Version 2)
Quarter: 2025Q4

REPORT INFORMATION
  Report Type: Spontaneous
  Country: EU (occurrence: EU)
  Receive Date: 20250808
  Receipt Date: 20251110
  Transmission Date: 20260117
  Serious: Yes (Other)
  Sender: SUNOVION
  Company Number: EU-DCGMA-25205617

PATIENT
  Sex: Female
  Weight: 80 kg

DRUGS (1)
  1. VIBEGRON [Suspect]
     Active Substance: VIBEGRON
     Indication: Hypertonic bladder
     Dosage: 75 MG
     Route: 048

REACTIONS (4)
  - Skin exfoliation [Unknown]
  - Erythema [Unknown]
  - Peripheral swelling [Unknown]
  - Pruritus [Unknown]
